FAERS Safety Report 4889960-2 (Version None)
Quarter: 2006Q1

REPORT INFORMATION
  Report Type: 
  Country: None (occurrence: None)
  Receive Date: 20060123
  Receipt Date: 20060123
  Transmission Date: 20060701
  Serious: Yes (Death)
  Sender: FDA-Public Use
  Company Number: None

PATIENT
  Age: 49 Year
  Sex: Male
  Weight: 57.1532 kg

DRUGS (1)
  1. PAXIL CR [Suspect]
     Dosage: ONE TABLET DAILY PO
     Route: 048
     Dates: start: 20051130, end: 20051201

REACTIONS (2)
  - COMPLETED SUICIDE [None]
  - INJURY ASPHYXIATION [None]
